FAERS Safety Report 19592497 (Version 2)
Quarter: 2021Q4

REPORT INFORMATION
  Report Type: Other
  Country: US (occurrence: US)
  Receive Date: 20210722
  Receipt Date: 20211014
  Transmission Date: 20220303
  Serious: Yes (Other)
  Sender: FDA-Public Use
  Company Number: US-CHEMI SPA-2114136

PATIENT
  Age: 10 Year
  Sex: Female

DRUGS (6)
  1. DECITABINE [Suspect]
     Active Substance: DECITABINE
  2. VINORELBINE [Concomitant]
     Active Substance: VINORELBINE TARTRATE
  3. CLOFARABINE [Concomitant]
     Active Substance: CLOFARABINE
  4. THIOTEPA [Concomitant]
     Active Substance: THIOTEPA
  5. GEMTUZUMAB OZOGAMICIN [Concomitant]
     Active Substance: GEMTUZUMAB OZOGAMICIN
  6. TOPOTECAN [Concomitant]
     Active Substance: TOPOTECAN HYDROCHLORIDE

REACTIONS (3)
  - Drug ineffective [Unknown]
  - Product use in unapproved indication [Unknown]
  - Off label use [Unknown]
